FAERS Safety Report 6395241-0 (Version None)
Quarter: 2009Q4

REPORT INFORMATION
  Report Type: 
  Country: None (occurrence: None)
  Receive Date: 20091009
  Receipt Date: 20090930
  Transmission Date: 20100525
  Serious: Yes (Death)
  Sender: FDA-Public Use
  Company Number: US-ROCHE-661199

PATIENT
  Sex: Female

DRUGS (3)
  1. XELODA [Suspect]
     Dosage: UNK
     Route: 065
  2. BEVACIZUMAB [Suspect]
     Dosage: UNK
     Route: 065
  3. TAXOTERE [Suspect]
     Dosage: UNK
     Route: 065

REACTIONS (1)
  - CEREBROVASCULAR ACCIDENT [None]
